FAERS Safety Report 14194857 (Version 4)
Quarter: 2018Q1

REPORT INFORMATION
  Report Type: Spontaneous
  Country: US (occurrence: US)
  Receive Date: 20171116
  Receipt Date: 20180226
  Transmission Date: 20180508
  Serious: No
  Sender: FDA-Public Use
  Company Number: US-LUNDBECK-DKLU2039792

PATIENT
  Age: 63 Year
  Sex: Female

DRUGS (4)
  1. NORTHERA [Suspect]
     Active Substance: DROXIDOPA
     Indication: ORTHOSTATIC HYPOTENSION
     Dosage: SCHEDULE B; TITRATION COMPLETE
     Route: 065
     Dates: start: 20171113
  2. NORTHERA [Suspect]
     Active Substance: DROXIDOPA
     Indication: AUTONOMIC NERVOUS SYSTEM IMBALANCE
     Dosage: SCHEDULE B TITRATING
     Route: 065
     Dates: start: 20171107
  3. NORTHERA [Suspect]
     Active Substance: DROXIDOPA
     Dosage: SCHEDULE B/TITRATION COMPLETE
     Route: 048
  4. CLONIDINE. [Concomitant]
     Active Substance: CLONIDINE
     Indication: PRODUCT USED FOR UNKNOWN INDICATION
     Route: 065

REACTIONS (14)
  - Tachyphrenia [Unknown]
  - Malaise [Unknown]
  - Nausea [Not Recovered/Not Resolved]
  - Headache [Not Recovered/Not Resolved]
  - Pollakiuria [Unknown]
  - Heart rate increased [Unknown]
  - Stress [Unknown]
  - Nasopharyngitis [Unknown]
  - Hypotension [Recovering/Resolving]
  - Insomnia [Unknown]
  - Hot flush [Recovered/Resolved]
  - Blood pressure increased [Recovering/Resolving]
  - Palpitations [Unknown]
  - Drug dose omission [Unknown]

NARRATIVE: CASE EVENT DATE: 20171107
